FAERS Safety Report 9426695 (Version 1)
Quarter: 2013Q3

REPORT INFORMATION
  Report Type: Spontaneous
  Country: US (occurrence: US)
  Receive Date: 20130730
  Receipt Date: 20130730
  Transmission Date: 20140515
  Serious: No
  Sender: FDA-Public Use
  Company Number: US-SANOFI-AVENTIS-2012SA060899

PATIENT
  Age: 61 Year
  Sex: Female

DRUGS (1)
  1. AMBIEN [Suspect]
     Route: 048

REACTIONS (5)
  - Therapeutic response increased [Unknown]
  - Lethargy [Unknown]
  - Vomiting [Unknown]
  - Nausea [Unknown]
  - Sedation [Unknown]
